FAERS Safety Report 21371784 (Version 1)
Quarter: 2022Q3

REPORT INFORMATION
  Report Type: Spontaneous
  Country: US (occurrence: None)
  Receive Date: 20220922
  Receipt Date: 20220922
  Transmission Date: 20221027
  Serious: Yes (Death)
  Sender: FDA-Public Use
  Company Number: None

PATIENT
  Age: 83 Year
  Sex: Male
  Weight: 63.19 kg

DRUGS (18)
  1. ERLEADA [Suspect]
     Active Substance: APALUTAMIDE
     Indication: Prostate cancer
     Dosage: FREQUENCY : DAILY;?
     Route: 048
     Dates: start: 202206, end: 20220913
  2. ATENOLOL [Concomitant]
     Active Substance: ATENOLOL
  3. AMLODIPINE BESYLATE [Concomitant]
     Active Substance: AMLODIPINE BESYLATE
  4. ATORVASTATIN CALCIUM [Concomitant]
     Active Substance: ATORVASTATIN CALCIUM
  5. DONEZPEZIL HCL [Concomitant]
  6. LISINOPRIL [Concomitant]
     Active Substance: LISINOPRIL
  7. OMEPRAZOLE [Concomitant]
     Active Substance: OMEPRAZOLE
  8. ALLOPURINOL [Concomitant]
     Active Substance: ALLOPURINOL
  9. VITAMIN D3 [Concomitant]
     Active Substance: CHOLECALCIFEROL
  10. NITROGLYCERIN [Concomitant]
     Active Substance: NITROGLYCERIN
  11. FAMOTIDINE [Concomitant]
     Active Substance: FAMOTIDINE
  12. CEFDINIR [Concomitant]
     Active Substance: CEFDINIR
  13. COCRYS [Concomitant]
  14. FUROSEMIDE [Concomitant]
     Active Substance: FUROSEMIDE
  15. HYDROCHLOROTHIAZIDE [Concomitant]
     Active Substance: HYDROCHLOROTHIAZIDE
  16. LINZESS [Concomitant]
     Active Substance: LINACLOTIDE
  17. PRAZOSIN HYDROCHLORIDE [Concomitant]
     Active Substance: PRAZOSIN HYDROCHLORIDE
  18. TADALAFIL [Concomitant]
     Active Substance: TADALAFIL

REACTIONS (1)
  - Death [None]

NARRATIVE: CASE EVENT DATE: 20220913
